FAERS Safety Report 6363543-X (Version None)
Quarter: 2009Q3

REPORT INFORMATION
  Report Type: 
  Country: None (occurrence: None)
  Receive Date: 20090919
  Receipt Date: 20090701
  Transmission Date: 20100115
  Serious: No
  Sender: FDA-Public Use
  Company Number: US-ABBOTT-09P-163-0583517-00

PATIENT
  Sex: Male
  Weight: 73.548 kg

DRUGS (4)
  1. HUMIRA [Suspect]
     Indication: PSORIATIC ARTHROPATHY
     Route: 058
     Dates: start: 20061201
  2. UNKNOWN ANTI-HYPERTENSIVE MEDICATION [Suspect]
     Indication: HYPERTENSION
     Dates: start: 20090101
  3. ATENOLOL [Concomitant]
     Indication: HYPERTENSION
     Route: 048
  4. TYLENOL W/ CODEINE NO. 4 [Concomitant]
     Indication: PAIN
     Route: 048

REACTIONS (8)
  - COUGH [None]
  - DRUG DOSE OMISSION [None]
  - ERYTHEMA [None]
  - HYPERTENSION [None]
  - PRURITUS [None]
  - RASH [None]
  - RESPIRATORY TRACT CONGESTION [None]
  - RHINORRHOEA [None]
